FAERS Safety Report 11054271 (Version 2)
Quarter: 2015Q2

REPORT INFORMATION
  Report Type: Spontaneous
  Country: US (occurrence: None)
  Receive Date: 20150420
  Receipt Date: 20150504
  Transmission Date: 20150821
  Serious: No
  Sender: FDA-Public Use
  Company Number: 2015-00041

PATIENT
  Age: 66 Year
  Sex: Female
  Weight: 81.65 kg

DRUGS (2)
  1. SYNTHROID [Concomitant]
     Active Substance: LEVOTHYROXINE SODIUM
  2. ZICAM COLD REMEDY NASAL GEL [Suspect]
     Active Substance: ZINC ACETATE\ZINC GLUCONATE
     Indication: UPPER RESPIRATORY TRACT INFECTION
     Dosage: 1 SPRAY NASALLY 3-4 TIMES
     Route: 045
     Dates: start: 20150330, end: 20150401

REACTIONS (1)
  - Anosmia [None]

NARRATIVE: CASE EVENT DATE: 20150410
